FAERS Safety Report 5020430-7 (Version None)
Quarter: 2006Q2

REPORT INFORMATION
  Report Type: 
  Country: None (occurrence: None)
  Receive Date: 20060601
  Receipt Date: 20060407
  Transmission Date: 20061013
  Serious: Yes (Life-Threatening)
  Sender: FDA-Public Use
  Company Number: 805#9#2006-00061

PATIENT
  Age: 1 Day
  Sex: Female

DRUGS (5)
  1. ALPROSTADIL [Suspect]
     Indication: HEART DISEASE CONGENITAL
     Dosage: INTRAVENOUS DRIP
     Route: 041
     Dates: start: 20050621, end: 20050630
  2. MENATETRENONE (MENATETRENONE) [Concomitant]
  3. SODIUM BICARBONATE IN PLASTIC CONTAINER [Concomitant]
  4. FUROSEMIDE [Concomitant]
  5. DOPAMINE (DOPAMINE HYDROCHLORIDE) [Concomitant]

REACTIONS (1)
  - APNOEIC ATTACK [None]
